FAERS Safety Report 5094793-0 (Version None)
Quarter: 2006Q3

REPORT INFORMATION
  Report Type: 
  Country: None (occurrence: None)
  Receive Date: 20060731
  Receipt Date: 20060412
  Transmission Date: 20061208
  Serious: No
  Sender: FDA-Public Use
  Company Number: 2006PV012007

PATIENT
  Age: 51 Year
  Sex: Female
  Weight: 106.5953 kg

DRUGS (4)
  1. BYETTA [Suspect]
     Indication: DIABETES MELLITUS NON-INSULIN-DEPENDENT
     Dosage: 5 MCG QD SC ; 5 MCG BID SC
     Route: 058
     Dates: start: 20060406, end: 20060407
  2. BYETTA [Suspect]
     Indication: DIABETES MELLITUS NON-INSULIN-DEPENDENT
     Dosage: 5 MCG QD SC ; 5 MCG BID SC
     Route: 058
     Dates: start: 20060408
  3. AMARYL [Concomitant]
  4. AVANDIA [Concomitant]

REACTIONS (5)
  - AGITATION [None]
  - CRYING [None]
  - MOOD SWINGS [None]
  - NAUSEA [None]
  - VOMITING [None]
